FAERS Safety Report 11660305 (Version 1)
Quarter: 2015Q4

REPORT INFORMATION
  Report Type: Spontaneous
  Country: US (occurrence: None)
  Receive Date: 20151023
  Receipt Date: 20151023
  Transmission Date: 20160304
  Serious: Yes (Hospitalization)
  Sender: FDA-Public Use
  Company Number: None

PATIENT
  Age: 71 Year
  Sex: Male
  Weight: 104.1 kg

DRUGS (1)
  1. METOPROLOL [Suspect]
     Active Substance: METOPROLOL
     Dosage: MG
     Route: 048
     Dates: start: 20140123, end: 20140206

REACTIONS (3)
  - Dizziness [None]
  - Bradycardia [None]
  - Wrong technique in product usage process [None]

NARRATIVE: CASE EVENT DATE: 20140206
